FAERS Safety Report 5069021-2 (Version None)
Quarter: 2006Q3

REPORT INFORMATION
  Report Type: 
  Country: None (occurrence: None)
  Receive Date: 20060802
  Receipt Date: 20060726
  Transmission Date: 20061208
  Serious: Yes (Other)
  Sender: FDA-Public Use
  Company Number: GB-ABBOTT-06P-167-0339024-00

PATIENT
  Sex: Female

DRUGS (1)
  1. ERYTHROMYCIN BASE [Suspect]
     Indication: GINGIVAL ABSCESS
     Route: 048
     Dates: start: 20060725, end: 20060725

REACTIONS (3)
  - ABDOMINAL PAIN UPPER [None]
  - MUSCLE SPASMS [None]
  - SWELLING FACE [None]
